FAERS Safety Report 10914272 (Version 2)
Quarter: 2016Q1

REPORT INFORMATION
  Report Type: Report from Study
  Country: KR (occurrence: KR)
  Receive Date: 20150313
  Receipt Date: 20160201
  Transmission Date: 20160525
  Serious: Yes (Hospitalization, Other)
  Sender: FDA-Public Use
  Company Number: KR-EISAI MEDICAL RESEARCH-EC-2014-002427

PATIENT
  Age: 40 Year
  Sex: Male
  Weight: 58.6 kg

DRUGS (19)
  1. EVOSKIN C TOTUM LITHIUM [Concomitant]
  2. SUCRALFATE. [Concomitant]
     Active Substance: SUCRALFATE
  3. PANTOPRAZOLE [Concomitant]
     Active Substance: PANTOPRAZOLE SODIUM
  4. CENTRUM [Concomitant]
     Active Substance: VITAMINS
  5. SILYMARIN [Concomitant]
     Active Substance: MILK THISTLE
  6. LACTULOSE. [Concomitant]
     Active Substance: LACTULOSE
  7. GLIMEPIRIDE. [Concomitant]
     Active Substance: GLIMEPIRIDE
  8. TELBIVUDINE [Concomitant]
     Active Substance: TELBIVUDINE
  9. PHAZYME COMPLEX [Concomitant]
  10. HYDROCORTISONE. [Concomitant]
     Active Substance: HYDROCORTISONE
  11. PREDNICARBATE. [Concomitant]
     Active Substance: PREDNICARBATE
  12. LENVATINIB [Suspect]
     Active Substance: LENVATINIB
     Indication: HEPATOCELLULAR CARCINOMA
     Route: 048
     Dates: start: 20140403, end: 20141209
  13. URSODEOXYCHOLIC ACID [Concomitant]
     Active Substance: URSODIOL
  14. METFORMIN [Concomitant]
     Active Substance: METFORMIN HYDROCHLORIDE
  15. GEMIGLIPTIN [Concomitant]
  16. LENVATINIB [Suspect]
     Active Substance: LENVATINIB
     Route: 048
     Dates: start: 20141215, end: 20150112
  17. TIROPRAMIDE [Concomitant]
     Active Substance: TIROPRAMIDE
  18. MORPHINE SULFATE. [Concomitant]
     Active Substance: MORPHINE SULFATE
  19. LOPERAMIDE [Concomitant]
     Active Substance: LOPERAMIDE

REACTIONS (2)
  - Decreased appetite [Recovering/Resolving]
  - Ascites [Not Recovered/Not Resolved]

NARRATIVE: CASE EVENT DATE: 20140528
